FAERS Safety Report 5917644-8 (Version None)
Quarter: 2008Q4

REPORT INFORMATION
  Report Type: 
  Country: None (occurrence: None)
  Receive Date: 20081010
  Receipt Date: 20081010
  Transmission Date: 20090506
  Serious: Yes (Other)
  Sender: FDA-Public Use
  Company Number: None

PATIENT
  Sex: Female
  Weight: 85.7298 kg

DRUGS (3)
  1. METOPROLOL SUCCINATE EXTENDED RELEASE [Suspect]
     Indication: EXTRASYSTOLES
     Dosage: 1 TABLET TWICE A DAY PO
     Route: 048
     Dates: start: 20080718, end: 20080922
  2. METOPROLOL SUCCINATE EXTENDED RELEASE [Suspect]
     Indication: HYPERTENSION
     Dosage: 1 TABLET TWICE A DAY PO
     Route: 048
     Dates: start: 20080718, end: 20080922
  3. METOPROLOL SUCCINATE EXTENDED RELEASE [Suspect]
     Indication: TACHYCARDIA
     Dosage: 1 TABLET TWICE A DAY PO
     Route: 048
     Dates: start: 20080718, end: 20080922

REACTIONS (7)
  - BLOOD PRESSURE INCREASED [None]
  - DIZZINESS [None]
  - EXTRASYSTOLES [None]
  - FATIGUE [None]
  - HEADACHE [None]
  - HEART RATE INCREASED [None]
  - SYNCOPE [None]
